FAERS Safety Report 11635610 (Version 1)
Quarter: 2015Q4

REPORT INFORMATION
  Report Type: Spontaneous
  Country: US (occurrence: US)
  Receive Date: 20151016
  Receipt Date: 20151016
  Transmission Date: 20160304
  Serious: No
  Sender: FDA-Public Use
  Company Number: US-PFIZER INC-2015333257

PATIENT
  Age: 77 Year
  Sex: Female
  Weight: 44 kg

DRUGS (1)
  1. PROTONIX [Suspect]
     Active Substance: PANTOPRAZOLE SODIUM
     Dosage: UNK

REACTIONS (8)
  - Ear pain [Unknown]
  - Headache [Unknown]
  - Hypersensitivity [Unknown]
  - Myalgia [Unknown]
  - Weight decreased [Unknown]
  - Sinusitis [Unknown]
  - Pyrexia [Unknown]
  - Bone pain [Unknown]
